FAERS Safety Report 26050969 (Version 1)
Quarter: 2025Q4

REPORT INFORMATION
  Report Type: Spontaneous
  Country: US (occurrence: US)
  Receive Date: 20251117
  Receipt Date: 20251117
  Transmission Date: 20260117
  Serious: No
  Sender: ALEXION PHARMACEUTICALS
  Company Number: US-AstraZeneca-CH-00989897A

PATIENT
  Sex: Male

DRUGS (2)
  1. TEZSPIRE [Suspect]
     Active Substance: TEZEPELUMAB-EKKO
     Indication: Asthma
     Dosage: UNK
  2. TEZSPIRE [Suspect]
     Active Substance: TEZEPELUMAB-EKKO

REACTIONS (8)
  - Pain [Recovering/Resolving]
  - Pyrexia [Recovering/Resolving]
  - Oropharyngeal pain [Recovering/Resolving]
  - Sneezing [Recovering/Resolving]
  - Nasopharyngitis [Recovering/Resolving]
  - Influenza like illness [Recovering/Resolving]
  - Rhinorrhoea [Recovering/Resolving]
  - Headache [Recovering/Resolving]

NARRATIVE: CASE EVENT DATE: 20251106
